FAERS Safety Report 15321980 (Version 1)
Quarter: 2018Q3

REPORT INFORMATION
  Report Type: Spontaneous
  Country: US (occurrence: US)
  Receive Date: 20180821
  Receipt Date: 20180821
  Transmission Date: 20181010
  Serious: Yes (Life-Threatening, Other)
  Sender: FDA-Public Use
  Company Number: None

PATIENT
  Age: 81 Year
  Sex: Male
  Weight: 78.62 kg

DRUGS (6)
  1. AMLODIPINE BESYLATE 10MG [Concomitant]
     Active Substance: AMLODIPINE BESYLATE
  2. METOPROLOL TARTRATE 25MG [Concomitant]
     Active Substance: METOPROLOL TARTRATE
  3. HARVONI [Suspect]
     Active Substance: LEDIPASVIR\SOFOSBUVIR
  4. SILDENAFIL CITRATE 100MG TAB [Concomitant]
     Active Substance: SILDENAFIL CITRATE
  5. LEVOTHYROXINE NA (SYNTHROID) 0.05MG TAB [Concomitant]
  6. TAMSULOSIN HCL 0.4MG CAP [Concomitant]

REACTIONS (8)
  - Ascites [None]
  - Skin oedema [None]
  - Hepatocellular carcinoma [None]
  - Portal vein thrombosis [None]
  - Hepatic cancer [None]
  - Hepatic mass [None]
  - Chronic hepatic failure [None]
  - Hepatic lesion [None]

NARRATIVE: CASE EVENT DATE: 20160919
